FAERS Safety Report 4831394-0 (Version None)
Quarter: 2005Q4

REPORT INFORMATION
  Report Type: 
  Country: None (occurrence: None)
  Receive Date: 20051118
  Receipt Date: 20051108
  Transmission Date: 20060501
  Serious: Yes (Other)
  Sender: FDA-Public Use
  Company Number: BE-GLAXOSMITHKLINE-B0400344A

PATIENT
  Age: 50 Year
  Sex: Male

DRUGS (2)
  1. AVANDIA [Suspect]
     Dosage: 4MG TWICE PER DAY
     Route: 065
  2. CARDIOVASCULAR DRUGS [Concomitant]

REACTIONS (4)
  - ASTHENIA [None]
  - DYSPNOEA EXACERBATED [None]
  - OEDEMA [None]
  - PANCYTOPENIA [None]
